FAERS Safety Report 6599961-4 (Version None)
Quarter: 2010Q1

REPORT INFORMATION
  Report Type: 
  Country: None (occurrence: None)
  Receive Date: 20100224
  Receipt Date: 20100217
  Transmission Date: 20100710
  Serious: Yes (Other)
  Sender: FDA-Public Use
  Company Number: US-SANOFI-AVENTIS-2010SA009881

PATIENT
  Age: 61 Year
  Sex: Female

DRUGS (13)
  1. TAXOTERE [Suspect]
     Indication: BREAST CANCER
     Route: 041
  2. TAXOTERE [Suspect]
     Route: 041
  3. TAXOTERE [Suspect]
     Route: 041
  4. TAXOTERE [Suspect]
     Route: 041
  5. CYTOXAN [Suspect]
     Indication: BREAST CANCER
     Route: 042
  6. CYTOXAN [Suspect]
     Route: 042
  7. CYTOXAN [Suspect]
     Route: 042
  8. CYTOXAN [Suspect]
     Route: 042
  9. TRASTUZUMAB [Suspect]
     Indication: BREAST CANCER
     Route: 042
  10. TRASTUZUMAB [Suspect]
     Route: 042
  11. TRASTUZUMAB [Suspect]
     Route: 042
  12. TRASTUZUMAB [Suspect]
     Route: 042
  13. THERAPEUTIC RADIOPHARMACEUTICALS [Concomitant]
     Indication: BREAST CANCER

REACTIONS (11)
  - BLINDNESS [None]
  - CATARACT [None]
  - COLOUR BLINDNESS ACQUIRED [None]
  - DEPRESSION [None]
  - DRY EYE [None]
  - HALLUCINATION [None]
  - METAMORPHOPSIA [None]
  - NEUROPATHY PERIPHERAL [None]
  - QUALITY OF LIFE DECREASED [None]
  - SUICIDAL IDEATION [None]
  - VISUAL IMPAIRMENT [None]
